FAERS Safety Report 5965383-X (Version None)
Quarter: 2008Q4

REPORT INFORMATION
  Report Type: 
  Country: None (occurrence: None)
  Receive Date: 20081119
  Receipt Date: 20081110
  Transmission Date: 20090506
  Serious: Yes (Death, Hospitalization)
  Sender: FDA-Public Use
  Company Number: 004168

PATIENT
  Age: 55 Year
  Sex: Male

DRUGS (4)
  1. BUSULFEX [Suspect]
     Indication: STEM CELL TRANSPLANT
     Dosage: 30 ML, DAILY DOSE ,  INTRAVENOUS
     Route: 042
     Dates: start: 20070929, end: 20070930
  2. THYMOGLOBULIN [Concomitant]
  3. MELPHALAN (MELPHALAN) [Concomitant]
  4. TACROLIMUS [Concomitant]

REACTIONS (13)
  - ACUTE GRAFT VERSUS HOST DISEASE [None]
  - ASTHMA [None]
  - CONSTIPATION [None]
  - CYSTITIS HAEMORRHAGIC [None]
  - DIABETES INSIPIDUS [None]
  - DYSPNOEA [None]
  - MALAISE [None]
  - MYOCARDITIS [None]
  - NAUSEA [None]
  - PYREXIA [None]
  - STOMATITIS [None]
  - VOMITING [None]
  - WEIGHT INCREASED [None]
